FAERS Safety Report 19471306 (Version 2)
Quarter: 2022Q1

REPORT INFORMATION
  Report Type: Report from Study
  Country: DE (occurrence: DE)
  Receive Date: 20210629
  Receipt Date: 20220315
  Transmission Date: 20220423
  Serious: Yes (Life-Threatening, Other)
  Sender: FDA-Public Use
  Company Number: DE-CELLTRION HEALTHCARE HUNGARY KFT-2021DE007995

PATIENT
  Age: 76 Year
  Sex: Male

DRUGS (25)
  1. ACYCLOVIR [Suspect]
     Active Substance: ACYCLOVIR
     Indication: Prophylaxis
     Dosage: 800 MILLIGRAM (2X /DAY)
     Route: 065
  2. DOXORUBICIN [Suspect]
     Active Substance: DOXORUBICIN
     Indication: Central nervous system lymphoma
     Dosage: UNK
     Route: 065
  3. DOXORUBICIN [Suspect]
     Active Substance: DOXORUBICIN
     Indication: Diffuse large B-cell lymphoma
     Dosage: 50 MILLIGRAM/SQ. METER (50 MG/M2 (R-CHOP) ON DAY 1)
     Route: 042
  4. LEUCOVORIN [Suspect]
     Active Substance: LEUCOVORIN
     Indication: Product used for unknown indication
     Dosage: UNK (RESCUE DOSE)
     Route: 065
  5. CARMUSTINE [Suspect]
     Active Substance: CARMUSTINE
     Indication: Central nervous system lymphoma
     Dosage: UNK
     Route: 065
  6. CARMUSTINE [Suspect]
     Active Substance: CARMUSTINE
     Indication: Diffuse large B-cell lymphoma
     Dosage: 400 MILLIGRAM/SQ. METER (R-HD-BCNU/TT) ON DAY 6
     Route: 065
  7. CYCLOPHOSPHAMIDE [Suspect]
     Active Substance: CYCLOPHOSPHAMIDE
     Indication: Diffuse large B-cell lymphoma
     Dosage: 750 MILLIGRAM/SQ. METER (ON DAY 1 (R-CHOP)
     Route: 042
  8. CYCLOPHOSPHAMIDE [Suspect]
     Active Substance: CYCLOPHOSPHAMIDE
     Indication: Central nervous system lymphoma
     Dosage: UNK (2 X CYCLOPHOSPHAMIDE 75% (DOSE REDUCTION)
     Route: 065
  9. CYTARABINE [Suspect]
     Active Substance: CYTARABINE
     Indication: Diffuse large B-cell lymphoma
     Dosage: 4 GRAM PER SQUARE METRE (4 G/M2 (R-ARAC/TT) ON DAYS 1-2 )
     Route: 065
  10. CYTARABINE [Suspect]
     Active Substance: CYTARABINE
     Indication: Central nervous system lymphoma
     Dosage: UNK
     Route: 065
  11. GRANULOCYTE COLONY-STIMULATING FACTOR NOS [Suspect]
     Active Substance: GRANULOCYTE COLONY-STIMULATING FACTOR NOS
     Indication: Stem cell therapy
     Dosage: 10 MICROGRAM/KILOGRAM BODY WEIGHT
     Route: 065
  12. METHOTREXATE [Suspect]
     Active Substance: METHOTREXATE
     Indication: Central nervous system lymphoma
     Dosage: UNK
     Route: 065
  13. METHOTREXATE [Suspect]
     Active Substance: METHOTREXATE
     Indication: Diffuse large B-cell lymphoma
     Dosage: 4 GRAM PER SQUARE METRE (4 G/M2 ON DAY 1 (R-MTX) )
     Route: 065
  14. PREDNISONE [Suspect]
     Active Substance: PREDNISONE
     Indication: Central nervous system lymphoma
     Dosage: UNK
     Route: 065
  15. PREDNISONE [Suspect]
     Active Substance: PREDNISONE
     Indication: Diffuse large B-cell lymphoma
     Dosage: 100 MILLIGRAM ((R-CHOP) ON DAYS 1-5
     Route: 042
  16. RITUXIMAB [Suspect]
     Active Substance: RITUXIMAB
     Indication: Diffuse large B-cell lymphoma
     Dosage: 1400 MILLIGRAM (ABS ON DAY 7 (R-HD-BCNU/TT)
     Route: 058
  17. RITUXIMAB [Suspect]
     Active Substance: RITUXIMAB
     Indication: Central nervous system lymphoma
     Dosage: 1400 MILLIGRAM (ABS ON DAY 1 (R-CHOP))
     Route: 058
  18. RITUXIMAB [Suspect]
     Active Substance: RITUXIMAB
     Dosage: 1400 MILLIGRAM (ABS ON DAY 0 (R-MTX)
     Route: 058
  19. RITUXIMAB [Suspect]
     Active Substance: RITUXIMAB
     Dosage: 1400 MILLIGRAM (ABS ON DAY 1 (R-ARAC/TT)
     Route: 058
  20. RITUXIMAB [Suspect]
     Active Substance: RITUXIMAB
     Indication: Diffuse large B-cell lymphoma
     Dosage: 375 MILLIGRAM/SQ. METER (ON DAY 0 (R-MTX) X 4 CYCLES)
     Route: 042
  21. RITUXIMAB [Suspect]
     Active Substance: RITUXIMAB
     Indication: Central nervous system lymphoma
     Dosage: 375 MILLIGRAM/SQ. METER (ON DAY 1 (R-CHOP) X 4 CYCLES)
     Route: 042
  22. THIOTEPA [Suspect]
     Active Substance: THIOTEPA
     Indication: Diffuse large B-cell lymphoma
     Dosage: 40 MILLIGRAM/SQ. METER (40 MG/M2 (R-ARAC/TT) ON DAY 2 )
     Route: 065
  23. THIOTEPA [Suspect]
     Active Substance: THIOTEPA
     Indication: Central nervous system lymphoma
     Dosage: UNK (2X5 MG/M2 (R-HD-BCNU/TT) ON DAY 5/4)
     Route: 065
  24. VINCRISTINE [Suspect]
     Active Substance: VINCRISTINE
     Indication: Diffuse large B-cell lymphoma
     Dosage: UNK (2/1 MG ABS (R-CHOP) ON DAY 1)
     Route: 042
  25. VINCRISTINE [Suspect]
     Active Substance: VINCRISTINE
     Indication: Central nervous system lymphoma
     Dosage: UNK
     Route: 065

REACTIONS (1)
  - Haematotoxicity [Unknown]
